FAERS Safety Report 9537949 (Version 3)
Quarter: 2013Q4

REPORT INFORMATION
  Report Type: Report from Study
  Country: DE (occurrence: DE)
  Receive Date: 20130919
  Receipt Date: 20131001
  Transmission Date: 20140711
  Serious: Yes (Death, Hospitalization)
  Sender: FDA-Public Use
  Company Number: DE-ROCHE-1271339

PATIENT
  Age: 81 Year
  Sex: Female
  Weight: 60 kg

DRUGS (9)
  1. TRASTUZUMAB EMTANSINE [Suspect]
     Indication: BREAST CANCER METASTATIC
     Route: 042
     Dates: start: 20130712, end: 20130823
  2. XGEVA [Suspect]
     Indication: BREAST CANCER METASTATIC
     Route: 058
     Dates: start: 201201, end: 20130718
  3. RAMIPRIL [Concomitant]
     Route: 048
  4. PANTOPRAZOLE [Concomitant]
     Route: 048
  5. NIFEDIPINE [Concomitant]
     Route: 048
  6. ATENOLOL [Concomitant]
     Route: 048
  7. XIPAMIDE [Concomitant]
     Route: 048
  8. ACTRAPID [Concomitant]
  9. PROTAPHANE [Concomitant]

REACTIONS (2)
  - Anaemia [Recovering/Resolving]
  - Fatigue [Fatal]
